FAERS Safety Report 7494600-2 (Version None)
Quarter: 2011Q2

REPORT INFORMATION
  Report Type: 
  Country: None (occurrence: None)
  Receive Date: 20110520
  Receipt Date: 20110509
  Transmission Date: 20111010
  Serious: Yes (Other)
  Sender: FDA-Public Use
  Company Number: PHHY2011IT35463

PATIENT
  Sex: Male

DRUGS (1)
  1. ZOMETA [Suspect]
     Indication: GASTROINTESTINAL NEOPLASM
     Dosage: 4 MG, UNK
     Route: 042
     Dates: start: 20100701, end: 20110301

REACTIONS (2)
  - OSTEOMYELITIS [None]
  - EXPOSED BONE IN JAW [None]
